FAERS Safety Report 14856922 (Version 1)
Quarter: 2018Q2

REPORT INFORMATION
  Report Type: Spontaneous
  Country: US (occurrence: US)
  Receive Date: 20180507
  Receipt Date: 20180507
  Transmission Date: 20180711
  Serious: No
  Sender: FDA-Public Use
  Company Number: US-ROCHE-2037256

PATIENT
  Sex: Male

DRUGS (5)
  1. LEVOTHYROXINE. [Concomitant]
     Active Substance: LEVOTHYROXINE
     Dosage: ONGOING:YES
     Route: 065
  2. ASPIRIN. [Concomitant]
     Active Substance: ASPIRIN
     Dosage: ONGOING:YES
     Route: 065
  3. ESBRIET [Suspect]
     Active Substance: PIRFENIDONE
     Indication: IDIOPATHIC PULMONARY FIBROSIS
     Dosage: 267 MG, 3 CAPSULES 3 TIMES PER DAY ;ONGOING: NO
     Route: 048
     Dates: start: 201612, end: 2017
  4. LOSARTAN. [Concomitant]
     Active Substance: LOSARTAN
     Dosage: ONGOING:YES
     Route: 065
  5. METFORMIN [Concomitant]
     Active Substance: METFORMIN HYDROCHLORIDE
     Dosage: ONGOING:YES
     Route: 065

REACTIONS (3)
  - Decreased appetite [Recovering/Resolving]
  - Diarrhoea [Recovered/Resolved]
  - Weight decreased [Unknown]
